FAERS Safety Report 12588365 (Version 1)
Quarter: 2016Q3

REPORT INFORMATION
  Report Type: Spontaneous
  Country: US (occurrence: US)
  Receive Date: 20160725
  Receipt Date: 20160725
  Transmission Date: 20161109
  Serious: No
  Sender: FDA-Public Use
  Company Number: US-JNJFOC-20160520384

PATIENT
  Age: 68 Year
  Sex: Female
  Weight: 94.35 kg

DRUGS (2)
  1. ZYRTEC [Suspect]
     Active Substance: CETIRIZINE HYDROCHLORIDE
     Route: 048
  2. ZYRTEC [Suspect]
     Active Substance: CETIRIZINE HYDROCHLORIDE
     Indication: MULTIPLE ALLERGIES
     Route: 048
     Dates: start: 20160518, end: 20160520

REACTIONS (2)
  - Drug administered to patient of inappropriate age [Unknown]
  - Expired product administered [Unknown]

NARRATIVE: CASE EVENT DATE: 20160518
